FAERS Safety Report 8953947 (Version 1)
Quarter: 2012Q4

REPORT INFORMATION
  Report Type: Report from Study
  Country: CH (occurrence: US)
  Receive Date: 20121206
  Receipt Date: 20121206
  Transmission Date: 20130627
  Serious: Yes (Death, Hospitalization)
  Sender: FDA-Public Use
  Company Number: US-009507513-1212USA000088

PATIENT
  Age: 60 Year
  Sex: Male
  Weight: 68 kg

DRUGS (16)
  1. DEXAMETHASONE [Suspect]
     Indication: METASTASES TO CENTRAL NERVOUS SYSTEM
     Dosage: 2 mg, bid
     Route: 048
     Dates: start: 20120202
  2. VEMURAFENIB [Suspect]
     Indication: MALIGNANT MELANOMA
     Dosage: 960 mg, bid
     Route: 048
     Dates: start: 20120208, end: 20120314
  3. VEMURAFENIB [Suspect]
     Dosage: 960 mg, bid
     Route: 048
     Dates: start: 20120404
  4. ACETAMINOPHEN [Concomitant]
     Dosage: daily dose 500 mg, prn
     Dates: start: 2001
  5. OMEPRAZOLE [Concomitant]
     Indication: PROPHYLAXIS
     Dosage: 10 mg, bid
     Route: 048
     Dates: start: 20120202, end: 20120207
  6. OMEPRAZOLE [Concomitant]
     Dosage: 10 mg,
     Route: 048
     Dates: start: 20120208
  7. VICODIN [Concomitant]
     Dosage: daily dose 500/50 mg, prn
     Route: 048
     Dates: start: 201201
  8. KEPPRA [Concomitant]
     Dosage: 250 mg, bid
     Route: 048
     Dates: start: 201202, end: 20120420
  9. LISINOPRIL [Concomitant]
     Dosage: 20 mg, qd
     Route: 048
     Dates: start: 2010
  10. LISINOPRIL [Concomitant]
     Dosage: 20 mg, bid
     Route: 048
     Dates: start: 20120301, end: 20120310
  11. ZANTAC [Concomitant]
     Indication: PROPHYLAXIS
     Dosage: 150 mg, qd
     Route: 048
     Dates: start: 2012
  12. LEVOFLOXACIN [Concomitant]
     Dosage: 500 mg, qd
     Dates: start: 20120314, end: 20120319
  13. DOCUSATE SODIUM [Concomitant]
     Indication: PROPHYLAXIS
     Dosage: 100 mg, qd
     Route: 048
     Dates: start: 20120319, end: 20120322
  14. HEPARIN [Concomitant]
     Indication: PROPHYLAXIS
     Dosage: 30 mg, qd
     Route: 042
     Dates: start: 20120319
  15. INSULIN LISPRO [Concomitant]
     Dosage: daily dose sliding scale, tid
     Route: 058
     Dates: start: 20120319, end: 20120322
  16. ROBITUSSIN AC (CODEINE PHOSPHATE (+) GUAIFENESIN) [Concomitant]
     Dosage: daily dose 1 tablet spoon
     Route: 048
     Dates: start: 201202

REACTIONS (4)
  - Post procedural infection [Recovered/Resolved]
  - Haemorrhage [Fatal]
  - Haemorrhage intracranial [Recovered/Resolved with Sequelae]
  - Brain oedema [Not Recovered/Not Resolved]
